FAERS Safety Report 16141413 (Version 2)
Quarter: 2019Q2

REPORT INFORMATION
  Report Type: Spontaneous
  Country: US (occurrence: US)
  Receive Date: 20190401
  Receipt Date: 20190606
  Transmission Date: 20190711
  Serious: Yes (Disabling)
  Sender: FDA-Public Use
  Company Number: US-PFIZER INC-2019137550

PATIENT
  Age: 75 Year
  Sex: Female
  Weight: 90 kg

DRUGS (2)
  1. LYRICA [Suspect]
     Active Substance: PREGABALIN
     Dosage: 100 MG, 2X/DAY (100 MG CAPSULE TWICE A DAY)
  2. LYRICA [Suspect]
     Active Substance: PREGABALIN
     Indication: ORAL PAIN
     Dosage: UNK UNK, 3X/DAY

REACTIONS (9)
  - Dysphagia [Unknown]
  - Swollen tongue [Not Recovered/Not Resolved]
  - Product use in unapproved indication [Unknown]
  - Eating disorder [Unknown]
  - Off label use [Unknown]
  - Oral discomfort [Unknown]
  - Pharyngitis [Unknown]
  - Drug intolerance [Unknown]
  - Dry mouth [Unknown]
